FAERS Safety Report 7006581-6 (Version None)
Quarter: 2010Q3

REPORT INFORMATION
  Report Type: 
  Country: None (occurrence: None)
  Receive Date: 20100921
  Receipt Date: 20100921
  Transmission Date: 20110219
  Serious: Yes (Hospitalization)
  Sender: FDA-Public Use
  Company Number: None

PATIENT
  Age: 28 Year
  Sex: Male
  Weight: 83.31 kg

DRUGS (1)
  1. ATRIPLA [Suspect]
     Indication: HIV INFECTION
     Dosage: ONE TABLET DAILY AT HS PO
     Route: 048
     Dates: start: 20100903, end: 20100911

REACTIONS (11)
  - ABNORMAL DREAMS [None]
  - BACK PAIN [None]
  - DIARRHOEA [None]
  - ERYTHEMA MULTIFORME [None]
  - HYPERSOMNIA [None]
  - MYALGIA [None]
  - ORAL DISORDER [None]
  - OROPHARYNGEAL PAIN [None]
  - PYREXIA [None]
  - STEVENS-JOHNSON SYNDROME [None]
  - VOMITING [None]
